FAERS Safety Report 19220986 (Version 1)
Quarter: 2021Q2

REPORT INFORMATION
  Report Type: Spontaneous
  Country: GB (occurrence: GB)
  Receive Date: 20210505
  Receipt Date: 20210505
  Transmission Date: 20210717
  Serious: Yes (Disabling, Other)
  Sender: FDA-Public Use
  Company Number: GB-MYLANLABS-2021M1026300

PATIENT
  Age: 63 Year
  Sex: Female
  Weight: 73.93 kg

DRUGS (7)
  1. AMLODIPIN                          /00972401/ [Concomitant]
     Active Substance: AMLODIPINE BESYLATE
     Dosage: UNK
  2. BACLOFENUM [Concomitant]
     Dosage: UNK
  3. DIAZEPAN [Concomitant]
     Active Substance: DIAZEPAM
     Dosage: UNK
  4. VENLAFAXIN [Concomitant]
     Active Substance: VENLAFAXINE HYDROCHLORIDE
     Dosage: UNK
  5. AMITRIPTYLIN [Concomitant]
     Active Substance: AMITRIPTYLINE
     Dosage: UNK
  6. MIRTAZAPIN [Concomitant]
     Active Substance: MIRTAZAPINE
     Dosage: UNK
  7. FENTANYL. [Suspect]
     Active Substance: FENTANYL
     Indication: PAIN
     Dosage: 150
     Route: 062

REACTIONS (2)
  - Drug monitoring procedure not performed [Unknown]
  - Seizure [Recovered/Resolved]
